FAERS Safety Report 14994606 (Version 2)
Quarter: 2018Q2

REPORT INFORMATION
  Report Type: Report from Study
  Country: US (occurrence: US)
  Receive Date: 20180611
  Receipt Date: 20180628
  Transmission Date: 20180711
  Serious: Yes (Other)
  Sender: FDA-Public Use
  Company Number: US-ASTELLAS-2016US013828

PATIENT

DRUGS (2)
  1. ERLOTINIB [Suspect]
     Active Substance: ERLOTINIB
     Indication: ADENOMATOUS POLYPOSIS COLI
     Dosage: UNK, UNKNOWN FREQ.
     Route: 048
  2. SULINDAC. [Suspect]
     Active Substance: SULINDAC
     Indication: ADENOMATOUS POLYPOSIS COLI
     Route: 048

REACTIONS (9)
  - Hypertension [Unknown]
  - Vision blurred [Unknown]
  - Dyspepsia [Unknown]
  - Diarrhoea [Unknown]
  - Alanine aminotransferase increased [Unknown]
  - Aspartate aminotransferase increased [Unknown]
  - Stomatitis [Unknown]
  - Dermatitis acneiform [Unknown]
  - Haematochezia [Unknown]
